FAERS Safety Report 7507191-4 (Version None)
Quarter: 2011Q2

REPORT INFORMATION
  Report Type: 
  Country: None (occurrence: None)
  Receive Date: 20110526
  Receipt Date: 20110516
  Transmission Date: 20111010
  Serious: Yes (Hospitalization)
  Sender: FDA-Public Use
  Company Number: ES-ELI_LILLY_AND_COMPANY-ES201105004654

PATIENT
  Sex: Female
  Weight: 80 kg

DRUGS (6)
  1. ESERTIA [Concomitant]
     Indication: ANXIETY
     Dosage: 15 MG, QD
     Route: 048
  2. FORTEO [Suspect]
     Indication: OSTEOPOROSIS
     Dosage: 20 UG, QD
     Route: 058
     Dates: start: 20100414
  3. ANAGASTRA [Concomitant]
     Indication: GASTROINTESTINAL DISORDER
     Dosage: 20 MG, QD
     Route: 048
  4. LYRICA [Concomitant]
     Indication: BONE PAIN
     Dosage: 75 MG, QD
     Route: 048
  5. DAFLON [Concomitant]
     Indication: BONE DISORDER
     Dosage: 500 MG, BID
  6. DISGREN [Concomitant]
     Indication: CARDIOVASCULAR DISORDER
     Dosage: 1 DF, QD
     Route: 048

REACTIONS (3)
  - HORMONE LEVEL ABNORMAL [None]
  - FALL [None]
  - WRIST FRACTURE [None]
